FAERS Safety Report 10467576 (Version 2)
Quarter: 2015Q1

REPORT INFORMATION
  Report Type: Spontaneous
  Country: US (occurrence: US)
  Receive Date: 20140922
  Receipt Date: 20150102
  Transmission Date: 20150720
  Serious: Yes (Other)
  Sender: FDA-Public Use
  Company Number: US-BAYER-2014-140869

PATIENT
  Age: 23 Year
  Sex: Female
  Weight: 81.63 kg

DRUGS (5)
  1. DEPAKOTE [Concomitant]
     Active Substance: DIVALPROEX SODIUM
     Indication: BIPOLAR DISORDER
  2. MIRENA [Suspect]
     Active Substance: LEVONORGESTREL
     Dosage: 20 MCG/24HR, CONT
     Route: 015
     Dates: start: 20130408, end: 20130723
  3. ORTHOCYCLEN [Concomitant]
  4. IBUPROFEN. [Concomitant]
     Active Substance: IBUPROFEN
     Dosage: 800 MG, UNK
  5. PREMARIN [Concomitant]
     Active Substance: ESTROGENS, CONJUGATED

REACTIONS (14)
  - Abdominal pain [None]
  - Emotional distress [None]
  - Genital haemorrhage [None]
  - Fear [None]
  - Pelvic pain [None]
  - Device issue [None]
  - Internal injury [None]
  - Anxiety [None]
  - Depression [None]
  - Uterine perforation [None]
  - Injury [None]
  - General physical health deterioration [None]
  - Medical device discomfort [None]
  - Depressed mood [None]

NARRATIVE: CASE EVENT DATE: 201305
